FAERS Safety Report 4678700-8 (Version None)
Quarter: 2005Q2

REPORT INFORMATION
  Report Type: 
  Country: None (occurrence: None)
  Receive Date: 20050531
  Receipt Date: 20050519
  Transmission Date: 20051028
  Serious: Yes (Death, Life-Threatening, Hospitalization)
  Sender: FDA-Public Use
  Company Number: CLOF-10008

PATIENT
  Age: 81 Year
  Sex: Male

DRUGS (8)
  1. CLOFARABINE [Suspect]
     Indication: ACUTE MYELOID LEUKAEMIA
     Dosage: 57 MG QD IV
     Route: 042
     Dates: start: 20050425, end: 20050428
  2. FOLIC ACID [Concomitant]
  3. NYSTATIN [Concomitant]
  4. AMPHOTERICIN B [Concomitant]
  5. CIPROFLOXACIN [Concomitant]
  6. GRANISETRON [Concomitant]
  7. METOCLOPRAMDE [Concomitant]
  8. TAZOCIN [Concomitant]

REACTIONS (16)
  - ATRIAL FIBRILLATION [None]
  - ATRIAL TACHYCARDIA [None]
  - GASTRITIS [None]
  - GASTROINTESTINAL HAEMORRHAGE [None]
  - GASTROINTESTINAL ULCER [None]
  - GASTROOESOPHAGEAL REFLUX DISEASE [None]
  - ILEUS PARALYTIC [None]
  - INFECTION [None]
  - NEUTROPENIA [None]
  - OESOPHAGITIS [None]
  - PANCYTOPENIA [None]
  - PERICARDIAL EFFUSION [None]
  - PULMONARY CONGESTION [None]
  - RECTAL HAEMORRHAGE [None]
  - SEPSIS [None]
  - SUPRAVENTRICULAR TACHYCARDIA [None]
